FAERS Safety Report 11005275 (Version 1)
Quarter: 2015Q2

REPORT INFORMATION
  Report Type: Spontaneous
  Country: GB (occurrence: GB)
  Receive Date: 20150409
  Receipt Date: 20150409
  Transmission Date: 20150821
  Serious: Yes (Other)
  Sender: FDA-Public Use
  Company Number: GB-WATSON-2015-07273

PATIENT
  Age: 42 Year
  Sex: Male
  Weight: 75 kg

DRUGS (1)
  1. NAPROXEN (UNKNOWN) [Suspect]
     Active Substance: NAPROXEN
     Indication: PRODUCT USED FOR UNKNOWN INDICATION
     Dosage: 1 DF, BID. AFTER FOOD
     Route: 065
     Dates: start: 20140928

REACTIONS (3)
  - Hypersensitivity [Unknown]
  - Rash macular [Unknown]
  - Angioedema [Unknown]

NARRATIVE: CASE EVENT DATE: 20150317
